FAERS Safety Report 26007516 (Version 4)
Quarter: 2025Q4

REPORT INFORMATION
  Report Type: Spontaneous
  Country: US (occurrence: US)
  Receive Date: 20251106
  Receipt Date: 20251126
  Transmission Date: 20260117
  Serious: Yes (Hospitalization, Other)
  Sender: AURINIA PHARMACEUTICALS
  Company Number: US-OTSUKA PHARMACEUTICAL NETHERLANDS B.V.-AUR-010302

PATIENT
  Sex: Male

DRUGS (1)
  1. LUPKYNIS [Suspect]
     Active Substance: VOCLOSPORIN
     Indication: Lupus nephritis
     Dosage: 7.9 MILLIGRAM, BID
     Dates: start: 20250415

REACTIONS (6)
  - Joint swelling [Recovering/Resolving]
  - Chest pain [Recovering/Resolving]
  - Renal disorder [Recovering/Resolving]
  - Cardiac disorder [Recovering/Resolving]
  - Pulmonary oedema [Unknown]
  - Product dose omission in error [Unknown]
